FAERS Safety Report 5215456-4 (Version None)
Quarter: 2007Q1

REPORT INFORMATION
  Report Type: 
  Country: None (occurrence: None)
  Receive Date: 20070119
  Receipt Date: 20070119
  Transmission Date: 20070707
  Serious: Yes (Hospitalization)
  Sender: FDA-Public Use
  Company Number: None

PATIENT
  Sex: Male
  Weight: 95 kg

DRUGS (1)
  1. LISINOPRIL [Suspect]
     Indication: HYPERTENSION
     Dosage: 1/2 TAB. -5MG- DAILY PO
     Route: 048

REACTIONS (13)
  - BLOOD CHOLESTEROL INCREASED [None]
  - DERMATITIS [None]
  - ERYTHEMA [None]
  - FACE OEDEMA [None]
  - FUNGAL INFECTION [None]
  - INFECTION [None]
  - LYMPHOEDEMA [None]
  - MUSCLE TIGHTNESS [None]
  - MUSCULOSKELETAL PAIN [None]
  - NEOPLASM MALIGNANT [None]
  - OEDEMA [None]
  - SKIN SWELLING [None]
  - ULCER [None]
